FAERS Safety Report 4561618-9 (Version None)
Quarter: 2005Q1

REPORT INFORMATION
  Report Type: 
  Country: None (occurrence: None)
  Receive Date: 20050121
  Receipt Date: 20041115
  Transmission Date: 20050727
  Serious: Yes (Other)
  Sender: FDA-Public Use
  Company Number: 2004097077

PATIENT
  Age: 74 Year
  Sex: Female
  Weight: 83.9154 kg

DRUGS (2)
  1. CELEBREX [Suspect]
     Indication: OSTEOARTHRITIS
     Dosage: 200 MG (200 MG, 1 IN 1 D), ORAL
     Route: 048
     Dates: start: 20010101
  2. LEVOTHYROXINE SODIUM [Concomitant]

REACTIONS (6)
  - DRUG INEFFECTIVE [None]
  - GINGIVAL RECESSION [None]
  - INSOMNIA [None]
  - MEDICATION ERROR [None]
  - OSTEOARTHRITIS [None]
  - PAIN IN EXTREMITY [None]
